FAERS Safety Report 6971704-1 (Version None)
Quarter: 2010Q3

REPORT INFORMATION
  Report Type: 
  Country: None (occurrence: None)
  Receive Date: 20100908
  Receipt Date: 20100507
  Transmission Date: 20110219
  Serious: Yes (Other)
  Sender: FDA-Public Use
  Company Number: US-PFIZER INC-2010055744

PATIENT
  Sex: Female
  Weight: 73 kg

DRUGS (6)
  1. NARDIL [Suspect]
     Indication: DEPRESSION
     Dosage: 15 MG, 2X/DAY
     Route: 048
  2. NARDIL [Suspect]
     Indication: ANXIETY
     Dates: end: 20100501
  3. NARDIL [Suspect]
     Dosage: 15 MG, 3X/DAY
     Dates: start: 20100430
  4. VALIUM [Suspect]
     Indication: ANXIETY
  5. VALIUM [Suspect]
     Indication: NERVOUSNESS
  6. ELAVIL [Suspect]
     Indication: ANXIETY

REACTIONS (9)
  - ARRHYTHMIA [None]
  - ASTHMA [None]
  - BLOOD PRESSURE INCREASED [None]
  - DECREASED APPETITE [None]
  - DIARRHOEA [None]
  - DRUG INEFFECTIVE [None]
  - EXPIRED DRUG ADMINISTERED [None]
  - GASTROOESOPHAGEAL REFLUX DISEASE [None]
  - TACHYPNOEA [None]
